FAERS Safety Report 11139198 (Version 1)
Quarter: 2015Q2

REPORT INFORMATION
  Report Type: Spontaneous
  Country: GB (occurrence: None)
  Receive Date: 20150522
  Receipt Date: 20150522
  Transmission Date: 20150821
  Serious: Yes (Other)
  Sender: FDA-Public Use
  Company Number: GB-H14001-15-00736

PATIENT
  Age: 62 Year
  Sex: Female

DRUGS (5)
  1. ANASTROZOL [Concomitant]
     Active Substance: ANASTROZOLE
  2. CO-AMOXICLAV /00756801/ [Suspect]
     Active Substance: AMOXICILLIN\CLAVULANIC ACID
     Indication: PROPHYLAXIS URINARY TRACT INFECTION
     Route: 048
     Dates: start: 201504, end: 2015
  3. CO-AMOXICLAV /00756801/ [Suspect]
     Active Substance: AMOXICILLIN\CLAVULANIC ACID
     Indication: URINARY TRACT INFECTION
     Dosage: 750 MG (250 MG,3 IN 1 D)
     Route: 048
     Dates: start: 20150409, end: 201504
  4. RAMIPRIL. [Concomitant]
     Active Substance: RAMIPRIL
  5. LIPITOR (ATORVASTATINE CALCIUM) [Concomitant]

REACTIONS (9)
  - Nasal dryness [None]
  - Vision blurred [None]
  - Dry throat [None]
  - Gastrooesophageal reflux disease [None]
  - Malaise [None]
  - Dry eye [None]
  - Dyspepsia [None]
  - Dry mouth [None]
  - Nausea [None]

NARRATIVE: CASE EVENT DATE: 20150409
